FAERS Safety Report 13105338 (Version 1)
Quarter: 2017Q1

REPORT INFORMATION
  Report Type: Spontaneous
  Country: GB (occurrence: GB)
  Receive Date: 20170111
  Receipt Date: 20170111
  Transmission Date: 20170428
  Serious: Yes (Other)
  Sender: FDA-Public Use
  Company Number: GB-UCBSA-2017000993

PATIENT
  Age: 2 Year
  Sex: Female
  Weight: 17 kg

DRUGS (3)
  1. KEPPRA [Suspect]
     Active Substance: LEVETIRACETAM
     Dosage: INCREASED DOSE
     Route: 048
     Dates: start: 2016, end: 2016
  2. KEPPRA [Suspect]
     Active Substance: LEVETIRACETAM
     Indication: MYOCLONIC EPILEPSY
     Dosage: 5 ML, 2X/DAY (BID)
     Route: 048
     Dates: start: 201603, end: 2016
  3. EPILIM [Concomitant]
     Active Substance: VALPROATE SODIUM
     Indication: PRODUCT USED FOR UNKNOWN INDICATION
     Dosage: UNK

REACTIONS (5)
  - Drop attacks [Recovered/Resolved]
  - Myoclonic epilepsy [Recovered/Resolved]
  - Disturbance in attention [Recovered/Resolved]
  - Feeling drunk [Recovered/Resolved]
  - Gait disturbance [Recovered/Resolved]

NARRATIVE: CASE EVENT DATE: 201603
